FAERS Safety Report 12447309 (Version 1)
Quarter: 2016Q2

REPORT INFORMATION
  Report Type: Spontaneous
  Country: GB (occurrence: GB)
  Receive Date: 20160608
  Receipt Date: 20160608
  Transmission Date: 20160815
  Serious: Yes (Death, Other)
  Sender: FDA-Public Use
  Company Number: GB-TEVA-664667ACC

PATIENT
  Age: 70 Year
  Sex: Male

DRUGS (2)
  1. XARELTO [Interacting]
     Active Substance: RIVAROXABAN
     Indication: ATRIAL FIBRILLATION
  2. WARFARIN [Suspect]
     Active Substance: WARFARIN

REACTIONS (6)
  - Alcohol interaction [Unknown]
  - Rectal haemorrhage [Fatal]
  - Large intestinal haemorrhage [Not Recovered/Not Resolved]
  - Cardiac arrest [Not Recovered/Not Resolved]
  - International normalised ratio increased [Not Recovered/Not Resolved]
  - Haemoglobin decreased [Not Recovered/Not Resolved]

NARRATIVE: CASE EVENT DATE: 20160107
